FAERS Safety Report 8130174-0 (Version None)
Quarter: 2012Q1

REPORT INFORMATION
  Report Type: 
  Country: None (occurrence: None)
  Receive Date: 20120210
  Receipt Date: 20120202
  Transmission Date: 20120608
  Serious: Yes (Hospitalization, Other)
  Sender: FDA-Public Use
  Company Number: US-ELI_LILLY_AND_COMPANY-US201110004527

PATIENT
  Sex: Male
  Weight: 117.91 kg

DRUGS (5)
  1. ANTIBIOTICS [Concomitant]
     Dosage: UNK, UNKNOWN
  2. ANTIHYPERTENSIVES [Concomitant]
     Dosage: UNK, UNKNOWN
  3. BYETTA [Suspect]
     Dosage: UNK UNK, UNKNOWN
     Dates: start: 20060101
  4. TYLENOL (CAPLET) [Concomitant]
     Dosage: UNK, UNKNOWN
  5. DRUG USED IN DIABETES [Concomitant]
     Dosage: UNK, UNKNOWN

REACTIONS (2)
  - PANCREATITIS ACUTE [None]
  - CHEST PAIN [None]
